FAERS Safety Report 6541287-9 (Version None)
Quarter: 2010Q1

REPORT INFORMATION
  Report Type: 
  Country: None (occurrence: None)
  Receive Date: 20100118
  Receipt Date: 20100108
  Transmission Date: 20100710
  Serious: Yes (Other)
  Sender: FDA-Public Use
  Company Number: JP-EISAI INC.-E3810-03423-SPO-JP

PATIENT
  Age: 69 Year
  Sex: Female

DRUGS (5)
  1. PARIET (RABEPRAZOLE) [Suspect]
     Indication: REFLUX OESOPHAGITIS
     Route: 048
     Dates: start: 20091222, end: 20100104
  2. MUCOSTA [Concomitant]
     Dosage: UNKNOWN
  3. GLORIAMIN [Concomitant]
     Dosage: UNKNOWN
  4. BLOPRESS [Concomitant]
     Dosage: UNKNOWN
  5. AMLODIPINE [Concomitant]
     Dosage: UNKNOWN

REACTIONS (1)
  - GASTROENTERITIS EOSINOPHILIC [None]
